FAERS Safety Report 6211352-4 (Version None)
Quarter: 2009Q2

REPORT INFORMATION
  Report Type: 
  Country: None (occurrence: None)
  Receive Date: 20090528
  Receipt Date: 20090512
  Transmission Date: 20091009
  Serious: Yes (Other)
  Sender: FDA-Public Use
  Company Number: 8033346

PATIENT
  Age: 27 Year
  Sex: Female

DRUGS (2)
  1. XYZAL [Suspect]
     Indication: DERMATITIS ALLERGIC
     Dosage: 5 MG 1/D PO
     Route: 048
     Dates: start: 20071201, end: 20080701
  2. MICROVAL [Concomitant]

REACTIONS (4)
  - DRUG EXPOSURE DURING PREGNANCY [None]
  - DRUG INTOLERANCE [None]
  - PREGNANCY [None]
  - PREGNANCY ON ORAL CONTRACEPTIVE [None]
